FAERS Safety Report 9439146 (Version 1)
Quarter: 2013Q3

REPORT INFORMATION
  Report Type: Spontaneous
  Country: GB (occurrence: GB)
  Receive Date: 20130802
  Receipt Date: 20130802
  Transmission Date: 20140515
  Serious: Yes (Life-Threatening, Hospitalization, Other)
  Sender: FDA-Public Use
  Company Number: GB-WATSON-2013-13640

PATIENT
  Age: 16 Year
  Sex: Female

DRUGS (7)
  1. PREDNISOLONE (UNKNOWN) [Suspect]
     Indication: JUVENILE IDIOPATHIC ARTHRITIS
     Dosage: 15 MG, UNK
     Route: 048
     Dates: start: 201101
  2. METHOTREXATE (UNKNOWN) [Suspect]
     Indication: JUVENILE IDIOPATHIC ARTHRITIS
     Dosage: 20 MG, UNK
     Route: 048
     Dates: start: 20110310, end: 20111203
  3. ROACTEMRA [Suspect]
     Indication: JUVENILE IDIOPATHIC ARTHRITIS
     Dosage: 440 MG, UNK
     Route: 042
     Dates: start: 20111108
  4. ROACTEMRA [Suspect]
     Dosage: 440 UNK, UNK
     Route: 042
     Dates: start: 20111122, end: 20111203
  5. LANSOPRAZOLE [Concomitant]
     Indication: PRODUCT USED FOR UNKNOWN INDICATION
     Route: 065
  6. FOLIC ACID ALMUS [Concomitant]
     Indication: PRODUCT USED FOR UNKNOWN INDICATION
     Dosage: 5 MG, UNK
     Route: 065
     Dates: start: 20110310, end: 20111203
  7. ADCAL D3 [Concomitant]
     Indication: PRODUCT USED FOR UNKNOWN INDICATION
     Dosage: UNK
     Route: 065
     Dates: start: 201101

REACTIONS (6)
  - Acute respiratory distress syndrome [Recovered/Resolved]
  - Pneumonitis [Recovered/Resolved]
  - Pyrexia [Recovered/Resolved]
  - Infection [Unknown]
  - Chills [Unknown]
  - Malaise [Unknown]
